FAERS Safety Report 7757747-9 (Version None)
Quarter: 2011Q3

REPORT INFORMATION
  Report Type: 
  Country: None (occurrence: None)
  Receive Date: 20110917
  Receipt Date: 20110905
  Transmission Date: 20111222
  Serious: Yes (Death)
  Sender: FDA-Public Use
  Company Number: HK-MYLANLABS-2011S1018894

PATIENT
  Age: 29 Year
  Sex: Female

DRUGS (4)
  1. PREDNISOLONE [Concomitant]
     Indication: SUICIDE ATTEMPT
     Dosage: AMOUNT INGESTED UNKNOWN
  2. HYDROXYCHLOROQUINE SULFATE [Suspect]
     Indication: SUICIDE ATTEMPT
     Dosage: APPROX. 100 TABLETS OF HYDROXYCHLOROQUINE 200MG
     Route: 048
     Dates: start: 20100601
  3. HYDROXYCHLOROQUINE SULFATE [Suspect]
     Indication: SYSTEMIC LUPUS ERYTHEMATOSUS
     Dosage: APPROX. 100 TABLETS OF HYDROXYCHLOROQUINE 200MG
     Route: 048
     Dates: start: 20100601
  4. HYDROXYCHLOROQUINE SULFATE [Suspect]
     Indication: OVERDOSE
     Dosage: APPROX. 100 TABLETS OF HYDROXYCHLOROQUINE 200MG
     Route: 048
     Dates: start: 20100601

REACTIONS (5)
  - SHOCK [None]
  - COMPLETED SUICIDE [None]
  - CARDIAC ARREST [None]
  - ELECTROCARDIOGRAM QRS COMPLEX PROLONGED [None]
  - OVERDOSE [None]
